FAERS Safety Report 21340787 (Version 1)
Quarter: 2022Q3

REPORT INFORMATION
  Report Type: Spontaneous
  Country: SG (occurrence: SG)
  Receive Date: 20220916
  Receipt Date: 20220916
  Transmission Date: 20221027
  Serious: Yes (Life-Threatening, Hospitalization, Other)
  Sender: FDA-Public Use
  Company Number: SG-CELLTRION INC.-2022SG014748

PATIENT

DRUGS (2)
  1. RITUXIMAB [Suspect]
     Active Substance: RITUXIMAB
     Indication: Diffuse large B-cell lymphoma
     Dosage: CURRENTLY ON TWO-MONTHLY MAINTENANCE RITUXIMAB (LAST ADMINISTERED 2-MONTHS PRIOR TO PRESENTATION)
  2. TOZINAMERAN [Suspect]
     Active Substance: TOZINAMERAN
     Indication: Immunisation
     Dosage: 3 DOSES OF BNT162B2 MRNA VACCINE

REACTIONS (2)
  - COVID-19 [Recovered/Resolved]
  - SARS-CoV-2 test negative [Unknown]
